FAERS Safety Report 7032186-7 (Version None)
Quarter: 2010Q4

REPORT INFORMATION
  Report Type: 
  Country: None (occurrence: None)
  Receive Date: 20101007
  Receipt Date: 20100121
  Transmission Date: 20110411
  Serious: Yes (Hospitalization)
  Sender: FDA-Public Use
  Company Number: AU-BRISTOL-MYERS SQUIBB COMPANY-14954234

PATIENT
  Age: 50 Year
  Sex: Male
  Weight: 110 kg

DRUGS (21)
  1. CETUXIMAB [Suspect]
     Indication: NON-SMALL CELL LUNG CANCER
     Dosage: STRENGTH: 5MG/ML; RECENT INF: (14JAN2010)
     Route: 042
     Dates: start: 20091029
  2. CARBOPLATIN [Suspect]
     Indication: NON-SMALL CELL LUNG CANCER
     Dosage: 1 DF - AUC 5, DAY 1 OF 21 DAY CYCLE.; RECENT DOSE: 30DEC09
     Route: 042
     Dates: start: 20091029
  3. GEMCITABINE [Suspect]
     Indication: NON-SMALL CELL LUNG CANCER
     Dosage: 95.2381 MG/M2(ON DAYS 1, 8 OF 21 DAY CYCLE);RECENT DOSE: 07JAN10
     Route: 042
     Dates: start: 20091029
  4. AURORIX [Concomitant]
     Indication: DEPRESSION
     Route: 048
     Dates: start: 19970101
  5. SEROQUEL [Concomitant]
     Indication: DEPRESSION
     Route: 048
     Dates: start: 19970101
  6. KALMA [Concomitant]
     Indication: DEPRESSION
     Route: 048
     Dates: start: 19940101
  7. NORMISON [Concomitant]
     Indication: SEDATION
     Route: 048
     Dates: start: 20020101
  8. MURELAX [Concomitant]
     Indication: ANXIETY
     Route: 048
     Dates: start: 19900101
  9. PLAVIX [Concomitant]
     Indication: ANTICOAGULANT THERAPY
     Route: 048
     Dates: start: 20060101
  10. LEVOTHYROXINE SODIUM [Concomitant]
     Indication: HYPOTHYROIDISM
     Route: 048
     Dates: start: 19830101
  11. TAZAC [Concomitant]
     Indication: GASTROOESOPHAGEAL REFLUX DISEASE
     Route: 048
     Dates: start: 20050101
  12. SOMAC [Concomitant]
     Indication: GASTROOESOPHAGEAL REFLUX DISEASE
     Route: 048
     Dates: start: 20050101
  13. EZETROL [Concomitant]
     Indication: HYPERCHOLESTEROLAEMIA
     Route: 048
     Dates: start: 20000101
  14. CRESTOR [Concomitant]
     Indication: HYPERCHOLESTEROLAEMIA
     Route: 048
     Dates: start: 20070101
  15. PREGAMAL [Concomitant]
     Dosage: 1 DF=1 TAB
     Route: 048
     Dates: start: 20080101
  16. ENDONE [Concomitant]
     Indication: PAIN
     Route: 048
     Dates: start: 20090601
  17. OXYCONTIN [Concomitant]
     Indication: PAIN
     Route: 048
     Dates: start: 20090601
  18. METOCLOPRAMIDE HCL [Concomitant]
     Indication: PROPHYLAXIS OF NAUSEA AND VOMITING
     Route: 048
     Dates: start: 20091030
  19. CEPHALEXIN [Concomitant]
     Indication: CELLULITIS
     Dates: start: 20091221
  20. KENACOMB OTIC [Concomitant]
     Indication: THERAPEUTIC SKIN CARE TOPICAL
     Route: 061
     Dates: start: 20100107
  21. HYDROCORTISONE [Concomitant]
     Indication: RASH
     Route: 061
     Dates: start: 20100107

REACTIONS (1)
  - CARDIAC FAILURE CONGESTIVE [None]
